FAERS Safety Report 22006621 (Version 1)
Quarter: 2023Q1

REPORT INFORMATION
  Report Type: Report from Study
  Country: US (occurrence: US)
  Receive Date: 20230217
  Receipt Date: 20230217
  Transmission Date: 20230417
  Serious: Yes (Other)
  Sender: FDA-Public Use
  Company Number: US-TAKEDA-2023TUS016990

PATIENT
  Age: 53 Year
  Sex: Female

DRUGS (1)
  1. VORTIOXETINE [Suspect]
     Active Substance: VORTIOXETINE
     Indication: Depression
     Dosage: UNK
     Route: 065

REACTIONS (4)
  - Mental impairment [Not Recovered/Not Resolved]
  - Apathy [Unknown]
  - Fatigue [Unknown]
  - Disturbance in attention [Unknown]
